FAERS Safety Report 13313875 (Version 2)
Quarter: 2017Q1

REPORT INFORMATION
  Report Type: Spontaneous
  Country: IT (occurrence: IT)
  Receive Date: 20170309
  Receipt Date: 20170313
  Transmission Date: 20170428
  Serious: Yes (Hospitalization)
  Sender: FDA-Public Use
  Company Number: IT-DSJP-DSE-2017-107707

PATIENT

DRUGS (2)
  1. TAVOR (LORAZEPAM) [Suspect]
     Active Substance: LORAZEPAM
     Indication: PRODUCT USED FOR UNKNOWN INDICATION
     Dosage: 20 DF, SINGLE
     Route: 048
     Dates: start: 20160829, end: 20160829
  2. GIANT [Suspect]
     Active Substance: AMLODIPINE BESYLATE\OLMESARTAN MEDOXOMIL
     Indication: HYPERTENSION
     Dosage: 80 DF, SINGLE
     Route: 048
     Dates: start: 20160829, end: 20160829

REACTIONS (3)
  - Drug abuse [Recovered/Resolved]
  - Sopor [Unknown]
  - Hypotension [Unknown]

NARRATIVE: CASE EVENT DATE: 20160829
